FAERS Safety Report 10641077 (Version 1)
Quarter: 2014Q4

REPORT INFORMATION
  Report Type: Spontaneous
  Country: US (occurrence: None)
  Receive Date: 20141208
  Receipt Date: 20141208
  Transmission Date: 20150529
  Serious: Yes (Hospitalization)
  Sender: FDA-Public Use
  Company Number: None

PATIENT
  Age: 57 Year
  Sex: Male

DRUGS (1)
  1. LOSARTAN [Suspect]
     Active Substance: LOSARTAN
     Indication: HYPERTENSION
     Dosage: 1/2 TAB, EVERY DAY, PO
     Route: 048
     Dates: start: 20140618, end: 20141206

REACTIONS (2)
  - Urticaria [None]
  - Angioedema [None]

NARRATIVE: CASE EVENT DATE: 20141206
